FAERS Safety Report 24579360 (Version 2)
Quarter: 2024Q4

REPORT INFORMATION
  Report Type: Spontaneous
  Country: IT (occurrence: IT)
  Receive Date: 20241105
  Receipt Date: 20241115
  Transmission Date: 20250115
  Serious: Yes (Death, Life-Threatening, Other)
  Sender: AUROBINDO
  Company Number: IT-CHEPLA-2024013309

PATIENT
  Age: 74 Year
  Sex: Male

DRUGS (6)
  1. PACLITAXEL [Suspect]
     Active Substance: PACLITAXEL
     Indication: Squamous cell carcinoma of lung
     Dosage: UNK
     Route: 065
     Dates: start: 202211, end: 202404
  2. CARBOPLATIN [Suspect]
     Active Substance: CARBOPLATIN
     Indication: Squamous cell carcinoma of lung
     Dosage: UNK
     Route: 065
     Dates: start: 202211, end: 202404
  3. FUROSEMIDE [Suspect]
     Active Substance: FUROSEMIDE
     Indication: Product used for unknown indication
     Dosage: UNK
     Route: 065
  4. TRETINOIN [Suspect]
     Active Substance: TRETINOIN
     Indication: Acute promyelocytic leukaemia
     Dosage: UNK
     Route: 065
  5. PEMBROLIZUMAB [Suspect]
     Active Substance: PEMBROLIZUMAB
     Indication: Squamous cell carcinoma of lung
     Dosage: UNK
     Route: 065
     Dates: start: 202211, end: 202404
  6. METHYLPREDNISOLONE [Suspect]
     Active Substance: METHYLPREDNISOLONE
     Indication: Product used for unknown indication
     Dosage: UNK
     Route: 065

REACTIONS (7)
  - Idiopathic intracranial hypertension [Fatal]
  - Loss of consciousness [Fatal]
  - Intracranial pressure increased [Fatal]
  - Acute promyelocytic leukaemia [Fatal]
  - Myalgia [Fatal]
  - Aphasia [Fatal]
  - Transaminases increased [Fatal]

NARRATIVE: CASE EVENT DATE: 20240101
